FAERS Safety Report 13019918 (Version 1)
Quarter: 2016Q4

REPORT INFORMATION
  Report Type: Spontaneous
  Country: US (occurrence: US)
  Receive Date: 20161212
  Receipt Date: 20161212
  Transmission Date: 20170207
  Serious: No
  Sender: FDA-Public Use
  Company Number: US-ROCHE-1750915

PATIENT
  Age: 68 Year
  Sex: Female

DRUGS (6)
  1. XANAX [Concomitant]
     Active Substance: ALPRAZOLAM
  2. GABAPENTIN. [Concomitant]
     Active Substance: GABAPENTIN
  3. ACTEMRA [Suspect]
     Active Substance: TOCILIZUMAB
     Indication: RHEUMATOID ARTHRITIS
     Dosage: STRENGTH : 162 MG PER 0.9 ML
     Route: 058
  4. NIFEDICAL XL [Concomitant]
     Active Substance: NIFEDIPINE
  5. PREDNISONE. [Concomitant]
     Active Substance: PREDNISONE
     Dosage: PATIENT IS BEING WEENED OFF PREDNISONE. CURRENTLY SHE TAKES 13MG PER DAY.
     Route: 065
  6. ZYRTEC [Concomitant]
     Active Substance: CETIRIZINE HYDROCHLORIDE

REACTIONS (4)
  - Neck pain [Unknown]
  - Musculoskeletal pain [Unknown]
  - Feeling jittery [Unknown]
  - Fatigue [Unknown]
